FAERS Safety Report 4548180-1 (Version None)
Quarter: 2005Q1

REPORT INFORMATION
  Report Type: 
  Country: None (occurrence: None)
  Receive Date: 20050105
  Receipt Date: 20050105
  Transmission Date: 20050727
  Serious: Yes (Other)
  Sender: FDA-Public Use
  Company Number: None

PATIENT
  Age: 61 Year
  Sex: Male
  Weight: 65.7716 kg

DRUGS (4)
  1. ZOLOFT [Suspect]
     Indication: ANXIETY
     Dosage: ONCE DAILY
     Dates: start: 20020601
  2. ZOLOFT [Suspect]
     Indication: DEPRESSION
     Dosage: ONCE DAILY
     Dates: start: 20020601
  3. ZOLOFT [Suspect]
     Indication: ANXIETY
     Dosage: ONCE DAILY
     Dates: start: 20040601
  4. ZOLOFT [Suspect]
     Indication: DEPRESSION
     Dosage: ONCE DAILY
     Dates: start: 20040601

REACTIONS (4)
  - DRUG WITHDRAWAL SYNDROME [None]
  - EYE MOVEMENT DISORDER [None]
  - LOSS OF LIBIDO [None]
  - SEXUAL DYSFUNCTION [None]
